FAERS Safety Report 8618570 (Version 2)
Quarter: 2014Q1

REPORT INFORMATION
  Report Type: Spontaneous
  Country: US (occurrence: None)
  Receive Date: 20120323
  Receipt Date: 20130305
  Transmission Date: 20141002
  Serious: Yes (Hospitalization, Other)
  Sender: FDA-Public Use
  Company Number: 163-21880-11122030

PATIENT
  Age: 79 Year
  Sex: Male

DRUGS (13)
  1. REVLIMID [Suspect]
     Indication: 5Q MINUS SYNDROME
     Dosage: 10 MG, DAILY FOR 21 DAYS ON 7 DAYS OFF, PO
     Route: 048
     Dates: start: 20111028, end: 20111214
  2. ARANESP (DARBEPOETIN ALFA) (UNKNOWN) [Suspect]
     Indication: PRODUCT USED FOR UNKNOWN INDICATION
  3. FOLBEE (TRIOBE) [Concomitant]
  4. BISOPROLOL [Concomitant]
  5. AMITRIPTYLINE [Concomitant]
  6. COZAAR (LOSARTAN POTASSIUM) (50 MILLIGRAM, TABLETS) (LOSARTAN POTASSIUM) [Concomitant]
  7. LIPITOR (ATORVASTATIN) [Concomitant]
  8. PLAVIX (CLOPIDOGREL SULFATE) [Concomitant]
  9. NOVOLIN INSULIN (INSULIN HUMAN INJECTION, ISOPHANE) [Concomitant]
  10. LENTIS INSULIN (INSULIN PORCINE ZINC SUSPENSION) [Concomitant]
  11. VITAMIN D (ERGOCALCIFEROL) [Concomitant]
  12. GLUCOSAMINE [Concomitant]
  13. ASPIRIN (ACETYLSALICYLIC ACID) [Concomitant]

REACTIONS (4)
  - Thrombosis [None]
  - Urinary tract infection [None]
  - Full blood count decreased [None]
  - Deep vein thrombosis [None]
